FAERS Safety Report 7609133-X (Version None)
Quarter: 2011Q3

REPORT INFORMATION
  Report Type: 
  Country: None (occurrence: None)
  Receive Date: 20110714
  Receipt Date: 20110712
  Transmission Date: 20111222
  Serious: Yes (Hospitalization)
  Sender: FDA-Public Use
  Company Number: FR-TEVA-242435ISR

PATIENT
  Sex: Male

DRUGS (7)
  1. REQUIP LP 8MG [Concomitant]
     Dosage: 1 DOSAGE FORMS;
     Route: 048
     Dates: start: 20100721
  2. REQUIP LP 8MG [Concomitant]
     Indication: PARKINSON'S DISEASE
     Dosage: 1 DOSAGE FORMS;
     Route: 048
     Dates: end: 20100716
  3. MODOPAR LP 100MG/25MG [Concomitant]
     Indication: PARKINSON'S DISEASE
     Dosage: 6 DOSAGE FORMS; 100MG/25MG
     Route: 048
  4. COMTAN [Concomitant]
     Dosage: 6 DOSAGE FORMS;
     Route: 048
     Dates: start: 20100721
  5. POTASSIUM CHLORIDE [Concomitant]
     Dosage: 3 DOSAGE FORMS;
     Route: 048
  6. AZILECT [Suspect]
     Indication: PARKINSON'S DISEASE
     Dosage: 1 DOSAGE FORMS;
     Route: 048
     Dates: start: 20100706, end: 20100716
  7. COMTAN [Concomitant]
     Indication: PARKINSON'S DISEASE
     Dosage: 1 DOSAGE FORMS;
     Route: 048
     Dates: end: 20100716

REACTIONS (3)
  - PAPILLOEDEMA [None]
  - VISUAL ACUITY REDUCED [None]
  - INTRACRANIAL PRESSURE INCREASED [None]
